FAERS Safety Report 4859913-9 (Version None)
Quarter: 2005Q4

REPORT INFORMATION
  Report Type: 
  Country: None (occurrence: None)
  Receive Date: 20051219
  Receipt Date: 20051110
  Transmission Date: 20060501
  Serious: Yes (Other)
  Sender: FDA-Public Use
  Company Number: GR-GILEAD-2005-0008923

PATIENT
  Sex: Female
  Weight: 51 kg

DRUGS (2)
  1. ADEFOVIR DIPIVOXIL KIT [Suspect]
     Indication: HEPATITIS B
     Route: 048
     Dates: start: 20040928, end: 20050831
  2. ADEFOVIR DIPIVOXIL KIT [Suspect]
     Indication: HEPATITIS D

REACTIONS (3)
  - ABORTION SPONTANEOUS [None]
  - DRUG EXPOSURE DURING PREGNANCY [None]
  - PREGNANCY [None]
